FAERS Safety Report 6340708-4 (Version None)
Quarter: 2009Q3

REPORT INFORMATION
  Report Type: 
  Country: None (occurrence: None)
  Receive Date: 20090904
  Receipt Date: 20090828
  Transmission Date: 20100115
  Serious: Yes (Other)
  Sender: FDA-Public Use
  Company Number: DE-B.I. PHARMACEUTICALS,INC./RIDGEFIELD-2009-DE-05675DE

PATIENT
  Sex: Male

DRUGS (2)
  1. SIFROL 0,7 MG [Suspect]
     Route: 048
  2. STALEVO 100 [Suspect]
     Route: 048

REACTIONS (2)
  - CONFUSIONAL STATE [None]
  - UNRESPONSIVE TO STIMULI [None]
